FAERS Safety Report 25847929 (Version 1)
Quarter: 2025Q3

REPORT INFORMATION
  Report Type: Spontaneous
  Country: US (occurrence: US)
  Receive Date: 20250925
  Receipt Date: 20250925
  Transmission Date: 20251020
  Serious: Yes (Other)
  Sender: NOVO NORDISK
  Company Number: US-NOVOPROD-1529533

PATIENT
  Age: 70 Year
  Sex: Female

DRUGS (6)
  1. SEMAGLUTIDE [Suspect]
     Active Substance: SEMAGLUTIDE
     Route: 058
  2. SEMAGLUTIDE [Suspect]
     Active Substance: SEMAGLUTIDE
     Indication: Weight control
     Route: 058
  3. SEMAGLUTIDE [Suspect]
     Active Substance: SEMAGLUTIDE
     Dosage: 10 MG, QW
     Dates: start: 20240924, end: 20250812
  4. WEGOVY [Suspect]
     Active Substance: SEMAGLUTIDE
     Route: 058
  5. WEGOVY [Suspect]
     Active Substance: SEMAGLUTIDE
     Indication: Weight control
     Route: 058
  6. WEGOVY [Suspect]
     Active Substance: SEMAGLUTIDE
     Dates: start: 20240924, end: 20250812

REACTIONS (5)
  - Optic ischaemic neuropathy [Not Recovered/Not Resolved]
  - Adverse drug reaction [Unknown]
  - Headache [Recovered/Resolved]
  - Nausea [Recovered/Resolved]
  - Counterfeit product administered [Unknown]

NARRATIVE: CASE EVENT DATE: 20240901
